FAERS Safety Report 14335811 (Version 1)
Quarter: 2017Q4

REPORT INFORMATION
  Report Type: Spontaneous
  Country: US (occurrence: US)
  Receive Date: 20171229
  Receipt Date: 20171229
  Transmission Date: 20180321
  Serious: Yes (Hospitalization)
  Sender: FDA-Public Use
  Company Number: US-VISTAPHARM, INC.-VER201712-001294

PATIENT
  Age: 69 Year
  Sex: Male

DRUGS (6)
  1. INSULIN ASPART [Concomitant]
     Active Substance: INSULIN ASPART
  2. PHENYTOIN. [Suspect]
     Active Substance: PHENYTOIN
     Indication: PRODUCT USED FOR UNKNOWN INDICATION
  3. INSULIN GLARGINE [Concomitant]
     Active Substance: INSULIN GLARGINE
  4. ACETAMINOPHEN. [Concomitant]
     Active Substance: ACETAMINOPHEN
     Indication: PYREXIA
  5. MORPHINE [Concomitant]
     Active Substance: MORPHINE
     Dosage: SUSTAINED ACTION
  6. ROSUVASTATIN. [Concomitant]
     Active Substance: ROSUVASTATIN

REACTIONS (9)
  - Idiosyncratic drug reaction [Unknown]
  - Somnolence [Unknown]
  - Mental status changes [Recovered/Resolved]
  - Cerebral disorder [Unknown]
  - Drug-disease interaction [Unknown]
  - Eye movement disorder [Unknown]
  - Nystagmus [Unknown]
  - Toxicity to various agents [Unknown]
  - Gait disturbance [Unknown]
